FAERS Safety Report 13267320 (Version 2)
Quarter: 2017Q1

REPORT INFORMATION
  Report Type: Spontaneous
  Country: GB (occurrence: GB)
  Receive Date: 20170224
  Receipt Date: 20170224
  Transmission Date: 20170428
  Serious: Yes (Other)
  Sender: FDA-Public Use
  Company Number: GB-CIPLA LTD.-2017GB02176

PATIENT

DRUGS (2)
  1. SERTRALINE [Suspect]
     Active Substance: SERTRALINE HYDROCHLORIDE
     Indication: DEPRESSION
     Dosage: 100 MG, UNK
     Route: 048
     Dates: start: 20151010, end: 20160601
  2. CERAZETTE [Concomitant]
     Active Substance: DESOGESTREL
     Dosage: UNK
     Route: 065

REACTIONS (1)
  - Anorgasmia [Recovering/Resolving]

NARRATIVE: CASE EVENT DATE: 20151020
